FAERS Safety Report 17091547 (Version 1)
Quarter: 2019Q4

REPORT INFORMATION
  Report Type: Spontaneous
  Country: US (occurrence: US)
  Receive Date: 20191129
  Receipt Date: 20191129
  Transmission Date: 20200122
  Serious: Yes (Hospitalization, Other)
  Sender: FDA-Public Use
  Company Number: US-SUNOVION-2019SUN005174

PATIENT
  Age: 42 Year
  Sex: Female

DRUGS (5)
  1. APTIOM [Suspect]
     Active Substance: ESLICARBAZEPINE ACETATE
     Dosage: 200 MG, QD
     Route: 048
  2. APTIOM [Suspect]
     Active Substance: ESLICARBAZEPINE ACETATE
     Dosage: UNK WEANING AT 25MG EVERY 2-3 MONTHS
     Route: 048
  3. APTIOM [Suspect]
     Active Substance: ESLICARBAZEPINE ACETATE
     Dosage: UNK TITRATED UP
     Route: 048
  4. VITAMIN C [Concomitant]
     Active Substance: ASCORBIC ACID
     Dosage: UNK
  5. APTIOM [Suspect]
     Active Substance: ESLICARBAZEPINE ACETATE
     Dosage: 850 MG (400MG QAM, 450MG EVERY EVENING)
     Route: 048

REACTIONS (13)
  - Malaise [Unknown]
  - Haemodilution [Unknown]
  - Depression [Recovering/Resolving]
  - Underdose [Unknown]
  - Rash [Unknown]
  - Hyponatraemia [Recovering/Resolving]
  - Dizziness [Unknown]
  - Therapeutic response unexpected [Unknown]
  - Muscle contractions involuntary [Unknown]
  - Panic attack [Recovering/Resolving]
  - Sensory overload [Unknown]
  - Muscle twitching [Unknown]
  - Off label use [Unknown]
